FAERS Safety Report 7253301-6 (Version None)
Quarter: 2011Q1

REPORT INFORMATION
  Report Type: 
  Country: None (occurrence: None)
  Receive Date: 20110129
  Receipt Date: 20100318
  Transmission Date: 20110831
  Serious: No
  Sender: FDA-Public Use
  Company Number: US-ABBOTT-10P-163-0633072-00

PATIENT
  Sex: Male
  Weight: 83.99 kg

DRUGS (3)
  1. HUMIRA [Suspect]
     Indication: CROHN'S DISEASE
     Dates: start: 20100311
  2. MUCINEX [Concomitant]
     Indication: SINUS HEADACHE
  3. PROPAXACIN [Concomitant]
     Indication: ANALGESIC THERAPY

REACTIONS (4)
  - SOMNOLENCE [None]
  - SINUS HEADACHE [None]
  - ABDOMINAL DISCOMFORT [None]
  - DIARRHOEA [None]
